FAERS Safety Report 8801958 (Version 1)
Quarter: 2012Q4

REPORT INFORMATION
  Report Type: 
  Country: US (occurrence: US)
  Receive Date: 20120921
  Receipt Date: 20120921
  Transmission Date: 20130627
  Serious: No
  Sender: FDA-Public Use
  Company Number: US-PFIZER INC-2012233391

PATIENT
  Age: 65 Year
  Sex: Female
  Weight: 100 kg

DRUGS (4)
  1. PRISTIQ [Suspect]
     Indication: DEPRESSION
     Dosage: 100 mg, daily
     Dates: start: 20120821
  2. AMITRIPTYLINE [Suspect]
     Indication: DEPRESSION
     Dosage: 200 mg, UNK
  3. CYMBALTA [Suspect]
     Indication: DEPRESSION
     Dosage: 60 mg at morning and 20 mg at night
  4. PROZAC [Suspect]
     Indication: DEPRESSION
     Dosage: UNK

REACTIONS (1)
  - Drug ineffective [Unknown]
